FAERS Safety Report 8289727-1 (Version None)
Quarter: 2012Q2

REPORT INFORMATION
  Report Type: 
  Country: None (occurrence: None)
  Receive Date: 20120417
  Receipt Date: 20120412
  Transmission Date: 20120825
  Serious: No
  Sender: FDA-Public Use
  Company Number: US-PFIZER INC-2012092248

PATIENT
  Sex: Male
  Weight: 9.977 kg

DRUGS (4)
  1. NEXIUM [Concomitant]
     Dosage: UNK
  2. GENOTROPIN [Suspect]
     Indication: GROWTH HORMONE DEFICIENCY
     Dosage: 0.4 MG, DAILY
     Dates: start: 20120403
  3. ERYPED [Concomitant]
     Indication: DYSPEPSIA
     Dosage: UNK, EVERY 6 HOURS
  4. BETHANECHOL [Concomitant]
     Indication: DYSPEPSIA
     Dosage: UNK, 3X/DAY

REACTIONS (1)
  - PYREXIA [None]
